FAERS Safety Report 14783831 (Version 3)
Quarter: 2019Q1

REPORT INFORMATION
  Report Type: Spontaneous
  Country: US (occurrence: US)
  Receive Date: 20180420
  Receipt Date: 20190315
  Transmission Date: 20190417
  Serious: Yes (Other)
  Sender: FDA-Public Use
  Company Number: US-ASTRAZENECA-2018SE48831

PATIENT
  Age: 19672 Day
  Sex: Male
  Weight: 86.2 kg

DRUGS (51)
  1. NEXIUM [Suspect]
     Active Substance: ESOMEPRAZOLE MAGNESIUM
     Route: 048
     Dates: start: 200201, end: 201612
  2. PRILOSEC [Suspect]
     Active Substance: OMEPRAZOLE MAGNESIUM
     Route: 048
     Dates: start: 20130521, end: 20170113
  3. MELOXICAM. [Concomitant]
     Active Substance: MELOXICAM
  4. NICOTINE. [Concomitant]
     Active Substance: NICOTINE
  5. METHADONE [Concomitant]
     Active Substance: METHADONE HYDROCHLORIDE
  6. PRILOSEC [Suspect]
     Active Substance: OMEPRAZOLE MAGNESIUM
     Route: 048
     Dates: start: 200201, end: 201612
  7. ATORVASTATIN [Concomitant]
     Active Substance: ATORVASTATIN
  8. FLUCONAZOLE. [Concomitant]
     Active Substance: FLUCONAZOLE
  9. AZATHIOPRINE. [Concomitant]
     Active Substance: AZATHIOPRINE
  10. DULOXETINE. [Concomitant]
     Active Substance: DULOXETINE
  11. PHENYLEPHRINE [Concomitant]
     Active Substance: PHENYLEPHRINE\PHENYLEPHRINE HYDROCHLORIDE
  12. NEXIUM 24HR [Suspect]
     Active Substance: ESOMEPRAZOLE MAGNESIUM
     Route: 048
     Dates: start: 200201, end: 201612
  13. PRILOSEC [Suspect]
     Active Substance: OMEPRAZOLE MAGNESIUM
     Route: 048
     Dates: start: 20130101, end: 20161231
  14. FAMOTIDINE. [Concomitant]
     Active Substance: FAMOTIDINE
  15. IPRATROPIUM ALBUTEROL [Concomitant]
     Active Substance: ALBUTEROL\IPRATROPIUM
  16. AZITHROMYCIN ANHYDROUS. [Concomitant]
     Active Substance: AZITHROMYCIN ANHYDROUS
  17. IBUPROFEN. [Concomitant]
     Active Substance: IBUPROFEN
  18. LOVENOX [Concomitant]
     Active Substance: ENOXAPARIN SODIUM
  19. ENOXAPARIN [Concomitant]
     Active Substance: ENOXAPARIN
  20. COUMADIN [Concomitant]
     Active Substance: WARFARIN SODIUM
  21. METHYLPREDNISOLONE. [Concomitant]
     Active Substance: METHYLPREDNISOLONE
  22. PRILOSEC OTC [Suspect]
     Active Substance: OMEPRAZOLE MAGNESIUM
     Route: 048
     Dates: start: 200201, end: 201612
  23. METHOCARBAMOL. [Concomitant]
     Active Substance: METHOCARBAMOL
  24. PREDNISONE. [Concomitant]
     Active Substance: PREDNISONE
  25. MESNA. [Concomitant]
     Active Substance: MESNA
  26. ZOLPIDEM [Concomitant]
     Active Substance: ZOLPIDEM\ZOLPIDEM TARTRATE
  27. PROMETHAZINE [Concomitant]
     Active Substance: PROMETHAZINE\PROMETHAZINE HYDROCHLORIDE
  28. RANITIDINE. [Concomitant]
     Active Substance: RANITIDINE
  29. PAROXETINE. [Concomitant]
     Active Substance: PAROXETINE
  30. CLOTRIMAZOLE. [Concomitant]
     Active Substance: CLOTRIMAZOLE
  31. PRAVASTATIN. [Concomitant]
     Active Substance: PRAVASTATIN
  32. FLUOCINONIDE. [Concomitant]
     Active Substance: FLUOCINONIDE
  33. NORTRIPTYLINE [Concomitant]
     Active Substance: NORTRIPTYLINE
  34. VENLAFAXINE [Concomitant]
     Active Substance: VENLAFAXINE HYDROCHLORIDE
  35. NORTRIPTYLINE [Concomitant]
     Active Substance: NORTRIPTYLINE
  36. CLONAZEPAM. [Concomitant]
     Active Substance: CLONAZEPAM
  37. PERCOCET [Concomitant]
     Active Substance: ACETAMINOPHEN\OXYCODONE HYDROCHLORIDE
  38. ACETAMINOPHEN. [Concomitant]
     Active Substance: ACETAMINOPHEN
  39. PREVACID [Suspect]
     Active Substance: LANSOPRAZOLE
     Route: 048
     Dates: start: 200201, end: 201612
  40. METHADONE [Concomitant]
     Active Substance: METHADONE HYDROCHLORIDE
  41. WARFARIN [Concomitant]
     Active Substance: WARFARIN
  42. LIDOCAINE. [Concomitant]
     Active Substance: LIDOCAINE
  43. RITUXAN [Concomitant]
     Active Substance: RITUXIMAB
  44. DEXILANT [Suspect]
     Active Substance: DEXLANSOPRAZOLE
     Route: 048
     Dates: start: 200201, end: 201612
  45. PREVACID 24 HR [Suspect]
     Active Substance: LANSOPRAZOLE
     Route: 048
     Dates: start: 200201, end: 201612
  46. PROTONIX [Suspect]
     Active Substance: PANTOPRAZOLE SODIUM
     Route: 048
     Dates: start: 200201, end: 201612
  47. IBUPROFEN. [Concomitant]
     Active Substance: IBUPROFEN
  48. CYCLOBENZAPRINE. [Concomitant]
     Active Substance: CYCLOBENZAPRINE
  49. GABAPENTIN. [Concomitant]
     Active Substance: GABAPENTIN
  50. TRAZODONE [Concomitant]
     Active Substance: TRAZODONE HYDROCHLORIDE
  51. PAXIL [Concomitant]
     Active Substance: PAROXETINE HYDROCHLORIDE

REACTIONS (3)
  - Chronic kidney disease [Unknown]
  - Renal injury [Unknown]
  - Nephritic syndrome [Unknown]

NARRATIVE: CASE EVENT DATE: 20130603
